FAERS Safety Report 5482932-9 (Version None)
Quarter: 2007Q4

REPORT INFORMATION
  Report Type: 
  Country: None (occurrence: None)
  Receive Date: 20071011
  Receipt Date: 20071003
  Transmission Date: 20080405
  Serious: Yes (Hospitalization)
  Sender: FDA-Public Use
  Company Number: US-SANOFI-SYNTHELABO-A03200705853

PATIENT
  Age: 74 Year
  Sex: Female

DRUGS (5)
  1. ELOXATIN [Suspect]
     Indication: COLON CANCER STAGE III
     Dosage: 128MG IN 250ML OF D5W
     Route: 042
     Dates: start: 20071002, end: 20071002
  2. LEUCOVORIN [Concomitant]
     Indication: COLON CANCER STAGE III
     Dosage: UNK
     Route: 042
     Dates: start: 20071002, end: 20071002
  3. LIPITOR [Concomitant]
     Dosage: UNK
     Route: 065
     Dates: end: 20070801
  4. NEXIUM [Concomitant]
     Dosage: UNK
     Route: 065
  5. XANAX [Concomitant]
     Dosage: UNK
     Route: 065

REACTIONS (4)
  - COLD SWEAT [None]
  - EXTRAVASATION [None]
  - INJECTION SITE PAIN [None]
  - PLEURAL EFFUSION [None]
